FAERS Safety Report 22033762 (Version 2)
Quarter: 2023Q2

REPORT INFORMATION
  Report Type: Spontaneous
  Country: JP (occurrence: JP)
  Receive Date: 20230224
  Receipt Date: 20230405
  Transmission Date: 20230722
  Serious: Yes (Hospitalization, Other)
  Sender: FDA-Public Use
  Company Number: JP-AMERICAN REGENT INC-2023000469

PATIENT
  Age: 65 Year
  Sex: Male

DRUGS (9)
  1. FERINJECT [Suspect]
     Active Substance: FERRIC CARBOXYMALTOSE
     Indication: Iron deficiency anaemia
     Dosage: 500 MILLIGRAM, DILUTED IN 100 ML OF 0.9% NACL (FIRST DOSE)
     Dates: start: 20220924, end: 20220924
  2. FERINJECT [Suspect]
     Active Substance: FERRIC CARBOXYMALTOSE
     Dosage: 500 MILLIGRAM, DILUTED IN 100 ML OF 0.9% NACL (SECOND DOSE)
     Dates: start: 20221001, end: 20221001
  3. ALLOPURINOL [Concomitant]
     Active Substance: ALLOPURINOL
     Indication: Product used for unknown indication
     Dosage: 300 MILLIGRAM/DAY
     Route: 048
     Dates: start: 20200701
  4. PRIMPERAN [Concomitant]
     Active Substance: METOCLOPRAMIDE HYDROCHLORIDE
     Indication: Gastrointestinal disorder
     Dosage: 15 MILLIGRAM
     Route: 048
     Dates: start: 20220801
  5. LAFUTIDINE [Concomitant]
     Active Substance: LAFUTIDINE
     Indication: Gastrointestinal disorder
     Dosage: 20 MILLIGRAM
     Route: 048
     Dates: start: 20220801
  6. LAFUTIDINE [Concomitant]
     Active Substance: LAFUTIDINE
     Dosage: 300 MILLIGRAM, 1 IN 1 D
     Route: 048
     Dates: start: 20220801
  7. REBAMIPIDE [Concomitant]
     Active Substance: REBAMIPIDE
     Indication: Gastrointestinal disorder
     Dosage: 300 MILLIGRAM
     Route: 048
     Dates: start: 20220801
  8. REBAMIPIDE [Concomitant]
     Active Substance: REBAMIPIDE
     Dosage: 300 MILLIGRAM, 1 IN 1D
     Route: 048
     Dates: start: 20220801
  9. URSO [Concomitant]
     Active Substance: URSODIOL
     Indication: Hepatitis alcoholic
     Dosage: 150 MILLIGRAM
     Route: 048
     Dates: start: 20220901

REACTIONS (5)
  - Blood creatinine increased [Unknown]
  - Glomerulonephritis acute [Unknown]
  - Blood potassium increased [Recovered/Resolved]
  - Epistaxis [Recovered/Resolved]
  - Infusion site eczema [Recovered/Resolved]

NARRATIVE: CASE EVENT DATE: 20221001
